FAERS Safety Report 6217101-8 (Version None)
Quarter: 2009Q2

REPORT INFORMATION
  Report Type: 
  Country: None (occurrence: None)
  Receive Date: 20090606
  Receipt Date: 20090527
  Transmission Date: 20091009
  Serious: Yes (Death, Hospitalization)
  Sender: FDA-Public Use
  Company Number: AU-PFIZER INC-2008065811

PATIENT
  Age: 63 Year

DRUGS (14)
  1. BLINDED *PLACEBO [Suspect]
     Indication: COLORECTAL CANCER
     Dosage: 37.5 MG, 1X/DAY
     Route: 048
     Dates: start: 20080506, end: 20080722
  2. BLINDED SUNITINIB MALATE [Suspect]
     Indication: COLORECTAL CANCER
     Dosage: 37.5 MG, 1X/DAY
     Route: 048
     Dates: start: 20080506, end: 20080722
  3. IRINOTECAN HYDROCHLORIDE [Suspect]
     Indication: COLORECTAL CANCER
     Dosage: 220 MG, UNK
     Route: 042
     Dates: start: 20080506, end: 20080714
  4. FLUOROURACIL [Suspect]
     Indication: COLORECTAL CANCER
     Dosage: 500 MG, UNK
     Route: 042
     Dates: start: 20080506, end: 20080716
  5. FLUOROURACIL [Suspect]
     Dosage: 2950 MG, UNK
     Route: 042
     Dates: start: 20080506, end: 20080716
  6. LEUCOVORIN CALCIUM [Suspect]
     Indication: COLORECTAL CANCER
     Dosage: 240 MG, UNK
     Route: 042
     Dates: start: 20080506, end: 20080714
  7. PARACETAMOL [Concomitant]
     Dates: start: 20080201
  8. NULYTELY [Concomitant]
     Dates: start: 20080505
  9. TEMAZE [Concomitant]
     Dates: start: 20080508
  10. GASTRO-STOP [Concomitant]
     Dates: start: 20080511
  11. MYLANTA [Concomitant]
     Dates: start: 20080514
  12. ZANTAC [Concomitant]
     Dates: start: 20080514
  13. DOMPERIDONE [Concomitant]
     Dates: start: 20080614
  14. SOMAC [Concomitant]
     Dates: start: 20080614

REACTIONS (2)
  - PNEUMONIA [None]
  - SEPSIS [None]
